FAERS Safety Report 9731538 (Version 1)
Quarter: 2013Q4

REPORT INFORMATION
  Report Type: Spontaneous
  Country: CA (occurrence: CA)
  Receive Date: 20131205
  Receipt Date: 20131205
  Transmission Date: 20140711
  Serious: Yes (Other)
  Sender: FDA-Public Use
  Company Number: PHHY2013CA137742

PATIENT
  Age: 53 Year
  Sex: Female

DRUGS (6)
  1. TRIAMCINOLONE [Suspect]
     Indication: MUSCULOSKELETAL PAIN
     Dosage: 40 MG, UNK
     Route: 014
  2. RITONAVIR [Interacting]
     Indication: HIV INFECTION
     Dosage: 100 MG DAILY
  3. DARUNAVIR [Concomitant]
     Indication: HIV INFECTION
     Dosage: 800 MG DAILY
  4. RALTEGRAVIR [Concomitant]
     Indication: HIV INFECTION
     Dosage: 400 MG, BID
  5. VALSARTAN [Concomitant]
     Indication: HYPERTENSION
     Dosage: 160 MG DAILY
  6. METFORMIN [Concomitant]
     Indication: TYPE 2 DIABETES MELLITUS
     Dosage: 500 MG, BID

REACTIONS (19)
  - Cushing^s syndrome [Recovering/Resolving]
  - Insomnia [Recovered/Resolved]
  - Elevated mood [Recovered/Resolved]
  - Affect lability [Recovered/Resolved]
  - Dry mouth [Recovered/Resolved]
  - Polydipsia [Recovered/Resolved]
  - Polyuria [Recovered/Resolved]
  - Blood glucose increased [Not Recovered/Not Resolved]
  - Blood pressure increased [Recovering/Resolving]
  - Increased appetite [Recovering/Resolving]
  - Nausea [Recovering/Resolving]
  - Vision blurred [Unknown]
  - Asthenia [Unknown]
  - Anxiety [Unknown]
  - Palpitations [Unknown]
  - Dizziness [Unknown]
  - Fat redistribution [Not Recovered/Not Resolved]
  - Swelling face [Recovering/Resolving]
  - Drug interaction [Unknown]
